FAERS Safety Report 11274456 (Version 3)
Quarter: 2015Q4

REPORT INFORMATION
  Report Type: Spontaneous
  Country: US (occurrence: US)
  Receive Date: 20150715
  Receipt Date: 20151001
  Transmission Date: 20160304
  Serious: Yes (Hospitalization)
  Sender: FDA-Public Use
  Company Number: US-ACTELION-A-US2015-120928

PATIENT
  Age: 63 Year
  Sex: Male

DRUGS (12)
  1. METFORMIN [Concomitant]
     Active Substance: METFORMIN HYDROCHLORIDE
  2. GLIPIZIDE. [Concomitant]
     Active Substance: GLIPIZIDE
  3. LASIX [Concomitant]
     Active Substance: FUROSEMIDE
  4. OPSUMIT [Suspect]
     Active Substance: MACITENTAN
     Indication: PULMONARY ARTERIAL HYPERTENSION
     Dosage: 10 MG, QD
     Route: 048
     Dates: start: 20140929
  5. LIPITOR [Concomitant]
     Active Substance: ATORVASTATIN CALCIUM
  6. PROTONIX [Concomitant]
     Active Substance: PANTOPRAZOLE SODIUM
  7. NASONEX [Concomitant]
     Active Substance: MOMETASONE FUROATE
  8. COREG [Concomitant]
     Active Substance: CARVEDILOL
  9. SUCRALFATE. [Concomitant]
     Active Substance: SUCRALFATE
  10. PLAVIX [Concomitant]
     Active Substance: CLOPIDOGREL BISULFATE
  11. ASPIRIN. [Concomitant]
     Active Substance: ASPIRIN
  12. RIOCIGUAT [Concomitant]
     Active Substance: RIOCIGUAT

REACTIONS (8)
  - Abdominal discomfort [Recovered/Resolved]
  - Oedema [Recovered/Resolved]
  - Asthenia [Recovered/Resolved]
  - Melaena [Recovered/Resolved]
  - Anaemia [Not Recovered/Not Resolved]
  - Ulcer haemorrhage [Recovered/Resolved]
  - Hypotension [Recovered/Resolved]
  - Dyspnoea exertional [Recovered/Resolved]

NARRATIVE: CASE EVENT DATE: 20141204
